FAERS Safety Report 4766515-1 (Version None)
Quarter: 2005Q3

REPORT INFORMATION
  Report Type: 
  Country: None (occurrence: None)
  Receive Date: 20050909
  Receipt Date: 20050825
  Transmission Date: 20060218
  Serious: Yes (Life-Threatening)
  Sender: FDA-Public Use
  Company Number: 2005S1008185

PATIENT
  Age: 66 Year
  Sex: Female

DRUGS (4)
  1. APOMORPHINE HYDROCHLORIDE (APOMORPHINE HYDROCHLORIDE) [Suspect]
     Indication: PARKINSON'S DISEASE
     Dosage: SC
     Route: 058
     Dates: start: 20050601
  2. SIFROL (PRAMIPEXOLE) (BEING QUERIED) [Suspect]
     Indication: PARKINSON'S DISEASE
     Dosage: PO
     Route: 048
  3. DOMPERIDONE [Concomitant]
  4. CARBIDOPA AND LEVODOPA [Concomitant]

REACTIONS (8)
  - ANXIETY [None]
  - CONTUSION [None]
  - MULTIPLE FRACTURES [None]
  - NAUSEA [None]
  - PHOBIA OF DRIVING [None]
  - RIB FRACTURE [None]
  - ROAD TRAFFIC ACCIDENT [None]
  - SLEEP ATTACKS [None]
